FAERS Safety Report 16009745 (Version 3)
Quarter: 2020Q1

REPORT INFORMATION
  Report Type: Spontaneous
  Country: US (occurrence: US)
  Receive Date: 20190227
  Receipt Date: 20200113
  Transmission Date: 20200409
  Serious: No
  Sender: FDA-Public Use
  Company Number: US-SA-2019SA054344

PATIENT
  Age: 47 Year
  Sex: Female

DRUGS (6)
  1. DUPIXENT [Suspect]
     Active Substance: DUPILUMAB
     Indication: DERMATITIS ATOPIC
     Dosage: 300 MG, QOW
     Route: 058
     Dates: start: 20190117
  2. DUPIXENT [Suspect]
     Active Substance: DUPILUMAB
     Dosage: UNK MG
  3. BACLOFEN. [Concomitant]
     Active Substance: BACLOFEN
  4. TRIAMTERENE AND HYDROCHLOROTHIAZIDE [Concomitant]
     Active Substance: HYDROCHLOROTHIAZIDE\TRIAMTERENE
  5. CYCLOBENZAPRINE. [Concomitant]
     Active Substance: CYCLOBENZAPRINE
  6. AMLODIPINE [Concomitant]
     Active Substance: AMLODIPINE BESYLATE

REACTIONS (5)
  - Sleep disorder [Unknown]
  - Rash [Recovering/Resolving]
  - Eczema [Not Recovered/Not Resolved]
  - Accident at work [Unknown]
  - Product dose omission [Not Recovered/Not Resolved]
